FAERS Safety Report 18615531 (Version 1)
Quarter: 2020Q4

REPORT INFORMATION
  Report Type: Report from Study
  Country: CA (occurrence: CA)
  Receive Date: 20201214
  Receipt Date: 20201214
  Transmission Date: 20210114
  Serious: Yes (Other)
  Sender: FDA-Public Use
  Company Number: PHHY2019CA031772

PATIENT
  Age: 52 Year
  Sex: Female

DRUGS (12)
  1. COSENTYX [Suspect]
     Active Substance: SECUKINUMAB
     Indication: PSORIATIC ARTHROPATHY
     Dosage: 150 MG, QMO
     Route: 058
     Dates: start: 20190306
  2. CELEBREX [Concomitant]
     Active Substance: CELECOXIB
     Indication: PRODUCT USED FOR UNKNOWN INDICATION
     Dosage: UNK
     Route: 065
  3. COSENTYX [Suspect]
     Active Substance: SECUKINUMAB
     Dosage: 300 MG, QMO
     Route: 058
     Dates: end: 20201004
  4. ADVIL [Concomitant]
     Active Substance: IBUPROFEN
     Indication: PRODUCT USED FOR UNKNOWN INDICATION
     Dosage: UNK
     Route: 065
  5. TYLENOL EXTRA STRENGTH [Concomitant]
     Active Substance: ACETAMINOPHEN
     Indication: PRODUCT USED FOR UNKNOWN INDICATION
     Dosage: 500 MG, QID,  500MG X 2 IN AM AND AGAIN IN PM.
     Route: 065
  6. IBUPROFEN. [Concomitant]
     Active Substance: IBUPROFEN
     Indication: PRODUCT USED FOR UNKNOWN INDICATION
     Dosage: UNK
     Route: 065
  7. ERELZI [Suspect]
     Active Substance: ETANERCEPT-SZZS
     Indication: ANKYLOSING SPONDYLITIS
     Dosage: 50 MG, QW
     Route: 058
     Dates: start: 20201117
  8. TYLENOL [Concomitant]
     Active Substance: ACETAMINOPHEN
     Indication: PRODUCT USED FOR UNKNOWN INDICATION
     Dosage: UNK
     Route: 065
  9. COSENTYX [Suspect]
     Active Substance: SECUKINUMAB
     Indication: ANKYLOSING SPONDYLITIS
     Dosage: 150 MG, QW
     Route: 058
     Dates: start: 20190206
  10. COSENTYX [Suspect]
     Active Substance: SECUKINUMAB
     Dosage: 300 MG, QMO
     Route: 058
     Dates: start: 20190830
  11. VOLTAREN [Concomitant]
     Active Substance: DICLOFENAC SODIUM
     Indication: PRODUCT USED FOR UNKNOWN INDICATION
     Dosage: UNK
     Route: 065
  12. VIMOVO [Concomitant]
     Active Substance: ESOMEPRAZOLE MAGNESIUM\NAPROXEN
     Indication: PRODUCT USED FOR UNKNOWN INDICATION
     Dosage: UNK
     Route: 065

REACTIONS (31)
  - Back pain [Unknown]
  - Nervousness [Unknown]
  - Disturbance in attention [Unknown]
  - Paraesthesia [Unknown]
  - Productive cough [Unknown]
  - Tooth infection [Recovered/Resolved]
  - Drug ineffective [Unknown]
  - Joint swelling [Unknown]
  - Pain in extremity [Unknown]
  - Muscle spasms [Unknown]
  - Anxiety [Unknown]
  - Respiratory tract congestion [Unknown]
  - Tooth infection [Unknown]
  - Pain [Unknown]
  - Dizziness [Unknown]
  - Fatigue [Unknown]
  - Oropharyngeal pain [Unknown]
  - Bursitis [Unknown]
  - Psoriatic arthropathy [Unknown]
  - Injection site mass [Unknown]
  - Illness [Unknown]
  - Abdominal pain upper [Unknown]
  - Ankylosing spondylitis [Unknown]
  - Fear of injection [Unknown]
  - Arthralgia [Unknown]
  - Limb discomfort [Unknown]
  - Taste disorder [Recovering/Resolving]
  - Gait disturbance [Unknown]
  - Dental caries [Unknown]
  - Toothache [Unknown]
  - Musculoskeletal stiffness [Unknown]

NARRATIVE: CASE EVENT DATE: 201902
